FAERS Safety Report 25661846 (Version 1)
Quarter: 2025Q3

REPORT INFORMATION
  Report Type: Spontaneous
  Country: EU (occurrence: EU)
  Receive Date: 20250809
  Receipt Date: 20250809
  Transmission Date: 20251020
  Serious: Yes (Other)
  Sender: CELLTRION
  Company Number: EU-PFIZER INC-202500105884

PATIENT

DRUGS (7)
  1. TRASTUZUMAB [Suspect]
     Active Substance: TRASTUZUMAB
     Indication: HER2 positive breast cancer
     Dates: start: 20200221, end: 20200604
  2. TRASTUZUMAB [Suspect]
     Active Substance: TRASTUZUMAB
     Indication: Breast cancer metastatic
     Dates: start: 20200702, end: 20210224
  3. TRASTUZUMAB [Suspect]
     Active Substance: TRASTUZUMAB
     Dates: start: 20210408, end: 20210520
  4. TRASTUZUMAB [Suspect]
     Active Substance: TRASTUZUMAB
     Dates: start: 20210408, end: 20210729
  5. PERTUZUMAB [Suspect]
     Active Substance: PERTUZUMAB
     Indication: Product used for unknown indication
     Dates: start: 20200702, end: 20210224
  6. PERTUZUMAB [Suspect]
     Active Substance: PERTUZUMAB
     Dates: start: 20210408, end: 20210520
  7. PERTUZUMAB [Suspect]
     Active Substance: PERTUZUMAB
     Dates: start: 20210408, end: 20210729

REACTIONS (8)
  - Breast cancer metastatic [Unknown]
  - Metastases to central nervous system [Unknown]
  - Generalised tonic-clonic seizure [Unknown]
  - Malignant neoplasm progression [Unknown]
  - Aphasia [Unknown]
  - Disturbance in attention [Unknown]
  - Myoclonus [Unknown]
  - Headache [Unknown]

NARRATIVE: CASE EVENT DATE: 20210310
